FAERS Safety Report 6674664-6 (Version None)
Quarter: 2010Q2

REPORT INFORMATION
  Report Type: 
  Country: None (occurrence: None)
  Receive Date: 20100409
  Receipt Date: 20100406
  Transmission Date: 20101027
  Serious: Yes (Hospitalization)
  Sender: FDA-Public Use
  Company Number: US-B.I. PHARMACEUTICALS,INC./RIDGEFIELD-2010-BP-00576BP

PATIENT
  Sex: Female

DRUGS (7)
  1. SPIRIVA [Suspect]
     Indication: CHRONIC OBSTRUCTIVE PULMONARY DISEASE
     Dosage: 18 MCG
     Route: 055
     Dates: start: 20040101
  2. COUMADIN [Suspect]
     Indication: ANTICOAGULANT THERAPY
     Dosage: 5 MG QOD AND 2.5 MG QOD
     Route: 048
     Dates: start: 19800101
  3. COUMADIN [Suspect]
     Indication: DEEP VEIN THROMBOSIS
  4. ALPRAZOLAM [Concomitant]
     Indication: HEART RATE INCREASED
  5. BROVANA [Concomitant]
     Indication: CHRONIC OBSTRUCTIVE PULMONARY DISEASE
  6. FLOVENT [Concomitant]
     Indication: CHRONIC OBSTRUCTIVE PULMONARY DISEASE
  7. XOPENEX [Concomitant]
     Indication: CHRONIC OBSTRUCTIVE PULMONARY DISEASE

REACTIONS (9)
  - COAGULOPATHY [None]
  - CYSTITIS [None]
  - DEEP VEIN THROMBOSIS [None]
  - GENERAL PHYSICAL HEALTH DETERIORATION [None]
  - HERPES ZOSTER [None]
  - INCORRECT ROUTE OF DRUG ADMINISTRATION [None]
  - KIDNEY INFECTION [None]
  - PNEUMONIA [None]
  - VASCULITIS [None]
